FAERS Safety Report 7325797-2 (Version None)
Quarter: 2011Q1

REPORT INFORMATION
  Report Type: 
  Country: None (occurrence: None)
  Receive Date: 20110302
  Receipt Date: 20110224
  Transmission Date: 20110831
  Serious: Yes (Other)
  Sender: FDA-Public Use
  Company Number: NL-GENZYME-FLUD-1000762

PATIENT
  Age: 77 Year
  Sex: Female

DRUGS (2)
  1. FLUDARA [Suspect]
     Indication: CHRONIC LYMPHOCYTIC LEUKAEMIA
     Dosage: UNK
     Route: 065
     Dates: start: 20060101, end: 20060101
  2. CYCLOPHOSPHAMIDE [Suspect]
     Indication: CHRONIC LYMPHOCYTIC LEUKAEMIA
     Dosage: UNK
     Route: 065
     Dates: start: 20060101, end: 20060101

REACTIONS (2)
  - VARICELLA VIRUS TEST POSITIVE [None]
  - LUMBAR RADICULOPATHY [None]
